FAERS Safety Report 9459821 (Version 1)
Quarter: 2013Q3

REPORT INFORMATION
  Report Type: Spontaneous
  Country: AU (occurrence: AU)
  Receive Date: 20130815
  Receipt Date: 20130815
  Transmission Date: 20140515
  Serious: Yes (Hospitalization)
  Sender: FDA-Public Use
  Company Number: AU-PFIZER INC-2013233519

PATIENT
  Age: 29 Year
  Sex: Male

DRUGS (5)
  1. METHOTREXATE [Suspect]
  2. CISPLATIN [Suspect]
  3. GENTAMICIN SULFATE [Suspect]
  4. VANCOMYCIN HCL [Suspect]
     Indication: AGRANULOCYTOSIS
     Dosage: 2 G, 1X/DAY
  5. IFOSFAMIDE [Suspect]

REACTIONS (2)
  - Stomatitis [Unknown]
  - Renal impairment [Unknown]
